FAERS Safety Report 4749063-4 (Version None)
Quarter: 2005Q3

REPORT INFORMATION
  Report Type: 
  Country: None (occurrence: None)
  Receive Date: 20050817
  Receipt Date: 20050804
  Transmission Date: 20060218
  Serious: Yes (Other)
  Sender: FDA-Public Use
  Company Number: 2005114259

PATIENT
  Sex: Male

DRUGS (1)
  1. DETRUSITOL XL (TOLTERODINE) [Suspect]
     Indication: BLADDER DISORDER

REACTIONS (2)
  - ABDOMINAL DISTENSION [None]
  - URINARY RETENTION [None]
